FAERS Safety Report 5878479-8 (Version None)
Quarter: 2008Q3

REPORT INFORMATION
  Report Type: 
  Country: None (occurrence: None)
  Receive Date: 20080911
  Receipt Date: 20080718
  Transmission Date: 20090109
  Serious: No
  Sender: FDA-Public Use
  Company Number: US-AMGEN-KDL293578

PATIENT
  Sex: Female

DRUGS (3)
  1. NEUPOGEN [Suspect]
     Indication: NEUTROPENIA
     Route: 058
     Dates: start: 20080128, end: 20080505
  2. IRON [Concomitant]
     Route: 048
     Dates: start: 20070101
  3. XOPENEX [Concomitant]
     Dates: start: 20070101

REACTIONS (1)
  - URTICARIA [None]
